FAERS Safety Report 9840903 (Version 2)
Quarter: 2014Q2

REPORT INFORMATION
  Report Type: Spontaneous
  Country: US (occurrence: US)
  Receive Date: 20140124
  Receipt Date: 20140529
  Transmission Date: 20141212
  Serious: No
  Sender: FDA-Public Use
  Company Number: US-009507513-1311USA008006

PATIENT
  Age: 81 Year
  Sex: Male
  Weight: 70.3 kg

DRUGS (3)
  1. MIRALAX [Suspect]
     Indication: GASTROINTESTINAL MOTILITY DISORDER
     Dosage: 34 G, QD
     Route: 048
     Dates: start: 20131107
  2. METAMUCIL [Concomitant]
     Indication: LAXATIVE SUPPORTIVE CARE
     Dosage: UNK, TID
     Dates: start: 2001
  3. EX-LAX (NEW FORMULA) [Concomitant]
     Indication: LAXATIVE SUPPORTIVE CARE
     Dosage: 2 DF, QD

REACTIONS (4)
  - Faeces hard [Not Recovered/Not Resolved]
  - Overdose [Unknown]
  - Drug effect decreased [Unknown]
  - Underdose [Unknown]
